FAERS Safety Report 24879108 (Version 3)
Quarter: 2025Q1

REPORT INFORMATION
  Report Type: Spontaneous
  Country: JP (occurrence: JP)
  Receive Date: 20250123
  Receipt Date: 20250326
  Transmission Date: 20250408
  Serious: No
  Sender: PFIZER
  Company Number: JP-PFIZER INC-PV202500007483

PATIENT

DRUGS (1)
  1. NGENLA [Suspect]
     Active Substance: SOMATROGON-GHLA

REACTIONS (1)
  - Injection site pain [Unknown]

NARRATIVE: CASE EVENT DATE: 20241115
